FAERS Safety Report 7389483-5 (Version None)
Quarter: 2011Q2

REPORT INFORMATION
  Report Type: 
  Country: None (occurrence: None)
  Receive Date: 20110401
  Receipt Date: 20110328
  Transmission Date: 20111010
  Serious: Yes (Hospitalization)
  Sender: FDA-Public Use
  Company Number: JP-SANOFI-AVENTIS-2011SA012940

PATIENT
  Age: 60 Year
  Sex: Male
  Weight: 58 kg

DRUGS (5)
  1. ANPLAG [Concomitant]
     Route: 048
     Dates: end: 20101129
  2. GASTER [Concomitant]
     Indication: PROPHYLAXIS
     Route: 048
     Dates: end: 20101129
  3. ASPIRIN [Concomitant]
     Route: 048
     Dates: start: 20100103, end: 20101129
  4. LIPITOR [Concomitant]
     Route: 048
     Dates: end: 20101129
  5. PLAVIX [Suspect]
     Route: 048
     Dates: start: 20100113, end: 20101129

REACTIONS (1)
  - IN-STENT CORONARY ARTERY RESTENOSIS [None]
